FAERS Safety Report 9029435 (Version 1)
Quarter: 2013Q1

REPORT INFORMATION
  Report Type: Report from Study
  Country: DK (occurrence: DK)
  Receive Date: 20130125
  Receipt Date: 20130125
  Transmission Date: 20140127
  Serious: Yes (Other)
  Sender: FDA-Public Use
  Company Number: DK-ASTELLAS-2013EU000488

PATIENT
  Age: 36 Year
  Sex: Male

DRUGS (6)
  1. PROGRAF [Suspect]
     Indication: RENAL TRANSPLANT
     Dosage: 0.1 MG/KG, BID
     Route: 048
  2. PROGRAF [Suspect]
     Indication: RENAL TRANSPLANT
     Dosage: 0.002 MG/KG, UNKNOWN/D
     Route: 042
  3. PROGRAF [Suspect]
     Dosage: 0.001 MG/KG, UNKNOWN/D
     Route: 042
  4. CYCLOSPORINE [Suspect]
     Indication: RENAL TRANSPLANT
     Dosage: 4 MG/KG, BID
     Route: 042
  5. CYCLOSPORINE [Suspect]
     Dosage: 0.34 MG/KG, UNKNOWN/D
     Route: 042
  6. CYCLOSPORINE [Suspect]
     Dosage: 0.155 MG/KG, UNKNOWN/D
     Route: 042

REACTIONS (1)
  - Insulin resistance [Unknown]
